FAERS Safety Report 8325361-2 (Version None)
Quarter: 2012Q2

REPORT INFORMATION
  Report Type: 
  Country: None (occurrence: None)
  Receive Date: 20120427
  Receipt Date: 20120420
  Transmission Date: 20120825
  Serious: Yes (Hospitalization, Other)
  Sender: FDA-Public Use
  Company Number: 2012SP008670

PATIENT
  Age: 69 Year
  Sex: Male
  Weight: 88.905 kg

DRUGS (2)
  1. ENTOCORT EC [Concomitant]
  2. ZEGERID [Suspect]
     Indication: DYSPEPSIA
     Dosage: 80 MG; UNK; PO
     Route: 048
     Dates: start: 20111201, end: 20120101

REACTIONS (4)
  - PAIN [None]
  - ABDOMINAL DISCOMFORT [None]
  - ABDOMINAL DISTENSION [None]
  - HYPOPHAGIA [None]
